FAERS Safety Report 9459079 (Version 1)
Quarter: 2013Q3

REPORT INFORMATION
  Report Type: Spontaneous
  Country: DE (occurrence: DE)
  Receive Date: 20130814
  Receipt Date: 20130814
  Transmission Date: 20140515
  Serious: Yes (Hospitalization)
  Sender: FDA-Public Use
  Company Number: DE-B.I. PHARMACEUTICALS,INC./RIDGEFIELD-2013-BI-24706DE

PATIENT
  Age: 72 Year
  Sex: Male
  Weight: 80 kg

DRUGS (5)
  1. PRADAXA [Suspect]
     Indication: ATRIAL FIBRILLATION
     Dosage: 300 MG
     Route: 048
  2. MICARDIS [Concomitant]
     Indication: HYPERTENSION
     Dosage: 80 MG
     Route: 048
  3. CONCOR [Concomitant]
     Indication: HYPERTENSION
     Dosage: DAILY DOSE : 2,5 MG
     Route: 048
  4. BERODUAL [Concomitant]
     Indication: ASTHMA
     Dosage: DAILY DOSE : 2 PUFFS
     Route: 055
  5. SULTANOL [Concomitant]
     Indication: ASTHMA
     Dosage: DAILY DOSE : 2 PUFFS
     Route: 055

REACTIONS (1)
  - Infarction [Recovered/Resolved with Sequelae]
